FAERS Safety Report 5167224-X (Version None)
Quarter: 2006Q4

REPORT INFORMATION
  Report Type: 
  Country: None (occurrence: None)
  Receive Date: 20061129
  Receipt Date: 20061116
  Transmission Date: 20070319
  Serious: Yes (Hospitalization, Other)
  Sender: FDA-Public Use
  Company Number: 2006BH014494

PATIENT
  Age: 26 Year
  Sex: Male

DRUGS (7)
  1. PHYSIONEAL 35 (PHYSIONEAL 35 GLUCOSE AND ELECTROLYTE SOLUTION) [Suspect]
     Indication: DIABETIC NEPHROPATHY
     Dosage: 4 L; EVERY DAY; IP
     Route: 033
     Dates: start: 20060813
  2. EXTERNAL (EXTRANEAL (ICODEXTRIN 7.5%) SOLUTION FOR PD) [Suspect]
     Indication: DIABETIC NEPHROPATHY
     Dosage: 2 L; EVERY DAY; IP
     Route: 033
     Dates: start: 20060813
  3. NUTRINEAL [Suspect]
     Indication: DIABETIC NEPHROPATHY
     Dosage: 2L: EVERY DAY; IP
     Route: 033
     Dates: start: 20060813
  4. LINEZOLID [Concomitant]
  5. AZTREONAM [Concomitant]
  6. METRONIDAZOLE [Concomitant]
  7. SODIUM BICARBONATE [Concomitant]

REACTIONS (8)
  - CULTURE POSITIVE [None]
  - DEVICE BREAKAGE [None]
  - DIALYSIS DEVICE COMPLICATION [None]
  - HYPERAMYLASAEMIA [None]
  - PANCREATITIS ACUTE [None]
  - PERITONITIS [None]
  - PHARMACEUTICAL PRODUCT COMPLAINT [None]
  - STAPHYLOCOCCAL INFECTION [None]
